FAERS Safety Report 21599796 (Version 1)
Quarter: 2022Q4

REPORT INFORMATION
  Report Type: Spontaneous
  Country: CA (occurrence: CA)
  Receive Date: 20221115
  Receipt Date: 20221115
  Transmission Date: 20230112
  Serious: Yes (Other)
  Sender: FDA-Public Use
  Company Number: CA-JNJFOC-20221126699

PATIENT
  Age: 30 Year
  Sex: Female
  Weight: 80 kg

DRUGS (4)
  1. REMICADE [Suspect]
     Active Substance: INFLIXIMAB
     Indication: Crohn^s disease
     Route: 041
  2. MESALAMINE [Concomitant]
     Active Substance: MESALAMINE
  3. METHYLPREDNISOLONE SODIUM SUCCINATE [Concomitant]
     Active Substance: METHYLPREDNISOLONE SODIUM SUCCINATE
     Route: 042
  4. PREDNISONE [Concomitant]
     Active Substance: PREDNISONE

REACTIONS (11)
  - Postpartum haemorrhage [Not Recovered/Not Resolved]
  - Endometriosis [Not Recovered/Not Resolved]
  - Dizziness postural [Not Recovered/Not Resolved]
  - Maternal exposure during pregnancy [Not Recovered/Not Resolved]
  - Weight increased [Not Recovered/Not Resolved]
  - Alopecia [Not Recovered/Not Resolved]
  - COVID-19 [Not Recovered/Not Resolved]
  - Infection [Not Recovered/Not Resolved]
  - Fatigue [Not Recovered/Not Resolved]
  - Constipation [Not Recovered/Not Resolved]
  - Off label use [Not Recovered/Not Resolved]
